FAERS Safety Report 15879612 (Version 1)
Quarter: 2019Q1

REPORT INFORMATION
  Report Type: Spontaneous
  Country: IN (occurrence: IN)
  Receive Date: 20190128
  Receipt Date: 20190128
  Transmission Date: 20190417
  Serious: Yes (Death, Hospitalization)
  Sender: FDA-Public Use
  Company Number: IN-MYLANLABS-2019M1005140

PATIENT
  Age: 4 Year
  Sex: Female

DRUGS (1)
  1. HEPARIN [Suspect]
     Active Substance: HEPARIN SODIUM
     Indication: ANTICOAGULANT THERAPY
     Route: 065

REACTIONS (8)
  - Mesenteric vein thrombosis [Unknown]
  - Haemodynamic instability [Unknown]
  - Condition aggravated [Unknown]
  - Colitis ischaemic [Unknown]
  - Abdominal distension [Unknown]
  - Heparin-induced thrombocytopenia [Fatal]
  - Cholestasis [Unknown]
  - Blood lactic acid increased [Unknown]
